FAERS Safety Report 18996454 (Version 1)
Quarter: 2021Q1

REPORT INFORMATION
  Report Type: Spontaneous
  Country: US (occurrence: US)
  Receive Date: 20210310
  Receipt Date: 20210310
  Transmission Date: 20210420
  Serious: Yes (Death)
  Sender: FDA-Public Use
  Company Number: None

PATIENT
  Age: 71 Year
  Sex: Female
  Weight: 104.4 kg

DRUGS (15)
  1. METOPROLOL. [Concomitant]
     Active Substance: METOPROLOL
  2. PREDNISONE. [Concomitant]
     Active Substance: PREDNISONE
  3. METFORMIN [Concomitant]
     Active Substance: METFORMIN HYDROCHLORIDE
  4. PAROXETINE. [Concomitant]
     Active Substance: PAROXETINE
  5. SPIRIVA [Concomitant]
     Active Substance: TIOTROPIUM BROMIDE MONOHYDRATE
  6. ATORVASTATIN [Concomitant]
     Active Substance: ATORVASTATIN
  7. DOFETILIDE. [Concomitant]
     Active Substance: DOFETILIDE
  8. XARELTO [Suspect]
     Active Substance: RIVAROXABAN
     Indication: ANTICOAGULANT THERAPY
     Dosage: ?          QUANTITY:1 TABLET(S);?
     Route: 048
  9. ADVAIR HFA [Concomitant]
     Active Substance: FLUTICASONE PROPIONATE\SALMETEROL XINAFOATE
  10. MULTIVITAMIN [Concomitant]
     Active Substance: VITAMINS
  11. ASPIRIN. [Concomitant]
     Active Substance: ASPIRIN
  12. FUROSEMIDE. [Concomitant]
     Active Substance: FUROSEMIDE
  13. DILTIAZEM. [Concomitant]
     Active Substance: DILTIAZEM
  14. OMEPRAZOLE. [Concomitant]
     Active Substance: OMEPRAZOLE
  15. CALCIUM [Concomitant]
     Active Substance: CALCIUM

REACTIONS (1)
  - Upper gastrointestinal haemorrhage [None]

NARRATIVE: CASE EVENT DATE: 20201021
